FAERS Safety Report 16169065 (Version 2)
Quarter: 2019Q3

REPORT INFORMATION
  Report Type: Spontaneous
  Country: CA (occurrence: CA)
  Receive Date: 20190408
  Receipt Date: 20190814
  Transmission Date: 20191004
  Serious: Yes (Hospitalization, Other)
  Sender: FDA-Public Use
  Company Number: CA-SA-2019SA094515

PATIENT
  Age: 58 Year
  Sex: Female

DRUGS (8)
  1. MYCOPHENOLATE MOFETIL. [Suspect]
     Active Substance: MYCOPHENOLATE MOFETIL
     Dosage: 1 G, BID
     Route: 065
  2. TACROLIMUS. [Suspect]
     Active Substance: TACROLIMUS
     Indication: IMMUNOSUPPRESSION
     Dosage: 8-10 NG/ML, UNK
     Route: 065
  3. ANAKINRA [Suspect]
     Active Substance: ANAKINRA
     Indication: IMMUNOSUPPRESSION
     Dosage: 100.0 MG
     Route: 065
  4. ETANERCEPT [Suspect]
     Active Substance: ETANERCEPT
     Indication: IMMUNOSUPPRESSION
     Dosage: 50 MG, UNK
     Route: 065
  5. MYCOPHENOLATE MOFETIL. [Suspect]
     Active Substance: MYCOPHENOLATE MOFETIL
     Indication: IMMUNOSUPPRESSION
     Dosage: 1.0 UNK, TID
     Route: 065
  6. ALEMTUZUMAB [Suspect]
     Active Substance: ALEMTUZUMAB
     Indication: IMMUNOSUPPRESSION
     Dosage: 30.0 MG
     Route: 041
  7. RIFAMPICIN [Concomitant]
     Active Substance: RIFAMPIN
     Indication: PRODUCT USED FOR UNKNOWN INDICATION
     Dosage: UNUNK UNK, UNK
     Route: 065
  8. INSULIN [Concomitant]
     Active Substance: INSULIN NOS
     Indication: HYPERGLYCAEMIA
     Dosage: UNK UNK, UNK
     Route: 065

REACTIONS (9)
  - Pancytopenia [Recovered/Resolved]
  - Product use in unapproved indication [Unknown]
  - Tumour lysis syndrome [Recovered/Resolved]
  - Diffuse large B-cell lymphoma [Recovered/Resolved]
  - Transplant failure [Unknown]
  - Lymphadenopathy [Recovered/Resolved]
  - Post transplant lymphoproliferative disorder [Recovered/Resolved]
  - Acute kidney injury [Recovered/Resolved]
  - Lymphoproliferative disorder [Recovered/Resolved]
